FAERS Safety Report 13275552 (Version 1)
Quarter: 2017Q1

REPORT INFORMATION
  Report Type: Spontaneous
  Country: US (occurrence: US)
  Receive Date: 20170228
  Receipt Date: 20170228
  Transmission Date: 20170428
  Serious: No
  Sender: FDA-Public Use
  Company Number: US-TEVA-743343ACC

PATIENT
  Age: 68 Year
  Sex: Female

DRUGS (3)
  1. COPAXONE [Suspect]
     Active Substance: GLATIRAMER ACETATE
     Indication: MULTIPLE SCLEROSIS
     Route: 058
     Dates: start: 201701
  2. CALCIUM [Concomitant]
     Active Substance: CALCIUM
  3. FISH OIL [Concomitant]
     Active Substance: FISH OIL

REACTIONS (1)
  - Injection site erythema [Recovered/Resolved]

NARRATIVE: CASE EVENT DATE: 201701
